FAERS Safety Report 4485736-9 (Version None)
Quarter: 2004Q4

REPORT INFORMATION
  Report Type: 
  Country: None (occurrence: None)
  Receive Date: 20041026
  Receipt Date: 20041020
  Transmission Date: 20050328
  Serious: Yes (Death, Other)
  Sender: FDA-Public Use
  Company Number: JP-JNJFOC-20040808346

PATIENT
  Sex: Female

DRUGS (4)
  1. DUROTEP [Suspect]
     Indication: CANCER PAIN
     Route: 062
  2. METOCLOPRAMIDE [Concomitant]
     Route: 017
  3. METOCLOPRAMIDE [Concomitant]
     Route: 017
  4. SENNA LEAF-SENNA POD [Concomitant]
     Indication: CONSTIPATION
     Dosage: PRN
     Route: 049

REACTIONS (9)
  - ALANINE AMINOTRANSFERASE INCREASED [None]
  - ASPARTATE AMINOTRANSFERASE INCREASED [None]
  - BLOOD ALKALINE PHOSPHATASE INCREASED [None]
  - CACHEXIA [None]
  - MALAISE [None]
  - NAUSEA [None]
  - RESPIRATORY DEPRESSION [None]
  - SOMNOLENCE [None]
  - TACHYCARDIA [None]
